FAERS Safety Report 11904779 (Version 1)
Quarter: 2016Q1

REPORT INFORMATION
  Report Type: Spontaneous
  Country: US (occurrence: US)
  Receive Date: 20160108
  Receipt Date: 20160108
  Transmission Date: 20160526
  Serious: Yes (Other)
  Sender: FDA-Public Use
  Company Number: US-ROCHE-1662547

PATIENT
  Age: 35 Year
  Sex: Female

DRUGS (1)
  1. RITUXAN [Suspect]
     Active Substance: RITUXIMAB
     Indication: PRODUCT USED FOR UNKNOWN INDICATION
     Dosage: 1 PER WEEK FOR 4 WEEKS
     Route: 042

REACTIONS (3)
  - Hepatitis C virus test positive [Unknown]
  - Ulcer [Recovering/Resolving]
  - Contusion [Recovering/Resolving]
